FAERS Safety Report 14078503 (Version 3)
Quarter: 2017Q4

REPORT INFORMATION
  Report Type: Report from Study
  Country: AU (occurrence: AU)
  Receive Date: 20171012
  Receipt Date: 20171114
  Transmission Date: 20180321
  Serious: Yes (Other)
  Sender: FDA-Public Use
  Company Number: PHHY2017AU146436

PATIENT
  Sex: Female

DRUGS (1)
  1. LEE011 [Suspect]
     Active Substance: RIBOCICLIB
     Indication: BREAST CANCER METASTATIC
     Dosage: 600 MG, QD
     Route: 048
     Dates: start: 20170919

REACTIONS (5)
  - Neutropenia [Unknown]
  - Blood bilirubin abnormal [Unknown]
  - Electrocardiogram QT prolonged [Unknown]
  - Blood calcium decreased [Unknown]
  - Platelet count abnormal [Unknown]
